FAERS Safety Report 9854097 (Version 3)
Quarter: 2014Q2

REPORT INFORMATION
  Report Type: Spontaneous
  Country: JP (occurrence: JP)
  Receive Date: 20140129
  Receipt Date: 20140611
  Transmission Date: 20141212
  Serious: Yes (Hospitalization, Other)
  Sender: FDA-Public Use
  Company Number: JP-UCBSA-110642

PATIENT
  Age: 75 Year
  Sex: Female
  Weight: 40.5 kg

DRUGS (6)
  1. CIMZIA [Suspect]
     Indication: RHEUMATOID ARTHRITIS
     Dosage: 400 MG, EV 2 WEEKS(QOW)
     Route: 058
     Dates: start: 20130830, end: 20131023
  2. RHEUMATREX [Suspect]
     Indication: RHEUMATOID ARTHRITIS
     Dosage: 10 MG, WEEKLY (QW)
     Route: 048
     Dates: start: 20130731, end: 20131024
  3. RHEUMATREX [Suspect]
     Dosage: 8 MG, WEEKLY (QW)
     Route: 048
     Dates: start: 20130717, end: 20130730
  4. RHEUMATREX [Suspect]
     Dosage: 6 MG, WEEKLY (QW)
     Route: 048
     Dates: start: 20130702, end: 20130716
  5. RECALBON [Concomitant]
     Indication: OSTEOPOROSIS
     Dosage: 50 MG, MONTHLY (QM)
     Route: 048
     Dates: start: 20130814, end: 20131024
  6. FOLIAMIN [Concomitant]
     Dosage: 5 MG, WEEKLY (QW)
     Route: 048
     Dates: start: 20130702, end: 20131024

REACTIONS (1)
  - Pneumocystis jirovecii pneumonia [Recovered/Resolved]
